FAERS Safety Report 20809711 (Version 1)
Quarter: 2022Q2

REPORT INFORMATION
  Report Type: Spontaneous
  Country: US (occurrence: None)
  Receive Date: 20220510
  Receipt Date: 20220510
  Transmission Date: 20220721
  Serious: Yes (Life-Threatening, Hospitalization, Disabling, Other)
  Sender: FDA-Public Use
  Company Number: None

PATIENT
  Age: 49 Year
  Sex: Female
  Weight: 80.55 kg

DRUGS (6)
  1. CLONIDINE [Suspect]
     Active Substance: CLONIDINE
     Indication: Hypertension
     Dosage: FREQUENCY : TWICE A DAY;?
     Route: 048
     Dates: start: 20160220, end: 20180911
  2. DEVICE [Concomitant]
     Active Substance: DEVICE
  3. METFORMIN [Concomitant]
     Active Substance: METFORMIN HYDROCHLORIDE
  4. junivia [Concomitant]
  5. metroprol [Concomitant]
  6. cymbalta diltiazem [Concomitant]

REACTIONS (5)
  - Urinary tract infection [None]
  - Blood pressure inadequately controlled [None]
  - Blood pressure increased [None]
  - Blood creatinine increased [None]
  - Renal disorder [None]
